FAERS Safety Report 4322324-9 (Version None)
Quarter: 2004Q1

REPORT INFORMATION
  Report Type: 
  Country: None (occurrence: None)
  Receive Date: 20040319
  Receipt Date: 20040309
  Transmission Date: 20041129
  Serious: Yes (Disabling, Other)
  Sender: FDA-Public Use
  Company Number: 2003-09-0171

PATIENT
  Age: 42 Year
  Sex: Male
  Weight: 81.6475 kg

DRUGS (7)
  1. INTRON A [Suspect]
     Indication: HEPATITIS C
     Dosage: TIW SUBCUTANEOUS
     Route: 058
     Dates: start: 19991006, end: 20000906
  2. RIBAVIRIN [Suspect]
     Indication: HEPATITIS C
     Dosage: BID ORAL
     Route: 048
     Dates: start: 19991006, end: 20000906
  3. ATENOLOL [Concomitant]
  4. COUMADIN [Concomitant]
  5. ZOLOFT [Concomitant]
  6. LIPITOR [Concomitant]
  7. ATACAND [Concomitant]

REACTIONS (10)
  - ALOPECIA [None]
  - ARTHRALGIA [None]
  - DRUG EFFECT DECREASED [None]
  - FATIGUE [None]
  - HYPOGONADISM [None]
  - INSOMNIA [None]
  - MYALGIA [None]
  - SUICIDAL IDEATION [None]
  - THYROID DISORDER [None]
  - WEIGHT DECREASED [None]
